FAERS Safety Report 21240022 (Version 1)
Quarter: 2022Q3

REPORT INFORMATION
  Report Type: Spontaneous
  Country: US (occurrence: None)
  Receive Date: 20220821
  Receipt Date: 20220821
  Transmission Date: 20221027
  Serious: Yes (Other)
  Sender: FDA-Public Use
  Company Number: None

PATIENT
  Age: 64 Year
  Sex: Female
  Weight: 60.75 kg

DRUGS (1)
  1. RECLAST [Suspect]
     Active Substance: ZOLEDRONIC ACID
     Indication: Osteoporosis
     Route: 042
     Dates: start: 20220804, end: 20220804

REACTIONS (10)
  - Headache [None]
  - Pain [None]
  - Back pain [None]
  - Arthralgia [None]
  - Influenza [None]
  - Scleritis [None]
  - Eye pain [None]
  - Vision blurred [None]
  - Eye swelling [None]
  - Impaired work ability [None]

NARRATIVE: CASE EVENT DATE: 20220805
